FAERS Safety Report 4360609-0 (Version None)
Quarter: 2004Q2

REPORT INFORMATION
  Report Type: 
  Country: None (occurrence: None)
  Receive Date: 20040519
  Receipt Date: 20040508
  Transmission Date: 20050107
  Serious: Yes (Other)
  Sender: FDA-Public Use
  Company Number: US-MERCK-0405USA00594

PATIENT
  Age: 64 Year
  Sex: Female

DRUGS (14)
  1. EMEND [Suspect]
     Route: 048
     Dates: start: 20040505
  2. CYTOXAN [Concomitant]
     Route: 065
  3. DECADRON [Concomitant]
     Route: 065
     Dates: start: 20040505
  4. ANZEMET [Concomitant]
     Route: 065
     Dates: start: 20040505
  5. EPIRUBICIN HYDROCHLORIDE [Concomitant]
     Route: 065
     Dates: start: 20040505
  6. PLENDIL [Concomitant]
     Route: 065
  7. FLUOROURACIL [Concomitant]
     Route: 065
     Dates: start: 20040505
  8. FOLIC ACID [Concomitant]
     Route: 065
  9. LOZOL [Concomitant]
     Route: 065
  10. SYNTHROID [Concomitant]
     Route: 065
  11. DILANTIN [Concomitant]
     Route: 065
  12. POTASSIUM (UNSPECIFIED) [Concomitant]
     Route: 065
  13. ZOCOR [Concomitant]
     Route: 065
  14. COUMADIN [Concomitant]
     Route: 065

REACTIONS (3)
  - DRUG LEVEL BELOW THERAPEUTIC [None]
  - GRAND MAL CONVULSION [None]
  - PANCYTOPENIA [None]
